FAERS Safety Report 24028741 (Version 1)
Quarter: 2024Q2

REPORT INFORMATION
  Report Type: Spontaneous
  Country: US (occurrence: US)
  Receive Date: 20240628
  Receipt Date: 20240628
  Transmission Date: 20240715
  Serious: No
  Sender: FDA-Public Use
  Company Number: US-SANOFI-02102382

PATIENT
  Age: 54 Year
  Sex: Male
  Weight: 126.98 kg

DRUGS (6)
  1. ALPROLIX [Suspect]
     Active Substance: EFTRENONACOG ALFA
     Indication: Factor IX deficiency
     Dosage: 13500 UNITS: UNKNOWN, FREQUENCY: OTHER
     Route: 065
  2. ALPROLIX [Suspect]
     Active Substance: EFTRENONACOG ALFA
     Indication: Factor IX deficiency
     Dosage: 13500 UNITS: UNKNOWN, FREQUENCY: OTHER
     Route: 065
  3. ALPROLIX [Suspect]
     Active Substance: EFTRENONACOG ALFA
     Dosage: 13500 UNITS: UNKNOWN, Q10D
     Route: 065
  4. ALPROLIX [Suspect]
     Active Substance: EFTRENONACOG ALFA
     Dosage: 13500 UNITS: UNKNOWN, Q10D
     Route: 065
  5. BENEFIX [Concomitant]
     Active Substance: COAGULATION FACTOR IX RECOMBINANT HUMAN\ISOPROPYL ALCOHOL
     Route: 065
  6. LISINOPRIL [Concomitant]
     Active Substance: LISINOPRIL
     Route: 065

REACTIONS (1)
  - Haemorrhage [Recovered/Resolved]
